FAERS Safety Report 8008655-X (Version None)
Quarter: 2011Q4

REPORT INFORMATION
  Report Type: 
  Country: None (occurrence: None)
  Receive Date: 20111227
  Receipt Date: 20111122
  Transmission Date: 20120403
  Serious: Yes (Death, Hospitalization, Other)
  Sender: FDA-Public Use
  Company Number: JP-ROCHE-792370

PATIENT
  Sex: Female
  Weight: 35 kg

DRUGS (4)
  1. AVASTIN [Suspect]
     Indication: COLON CANCER METASTATIC
     Route: 041
     Dates: start: 20101225, end: 20110124
  2. FLUOROURACIL [Concomitant]
     Indication: COLON CANCER METASTATIC
     Route: 041
     Dates: start: 20101225, end: 20110125
  3. LEVOLEUCOVORIN CALCIUM [Concomitant]
     Indication: COLON CANCER METASTATIC
     Route: 041
     Dates: start: 20101225, end: 20110124
  4. OXALIPLATIN [Concomitant]
     Indication: COLON CANCER METASTATIC
     Route: 041
     Dates: start: 20101225, end: 20110124

REACTIONS (5)
  - DISSEMINATED INTRAVASCULAR COAGULATION [None]
  - DISEASE PROGRESSION [None]
  - LARGE INTESTINE PERFORATION [None]
  - ENTEROCUTANEOUS FISTULA [None]
  - ABSCESS [None]
